FAERS Safety Report 23365624 (Version 2)
Quarter: 2024Q1

REPORT INFORMATION
  Report Type: Spontaneous
  Country: US (occurrence: US)
  Receive Date: 20240104
  Receipt Date: 20240123
  Transmission Date: 20240410
  Serious: No
  Sender: FDA-Public Use
  Company Number: US-VERTEX PHARMACEUTICALS-2023-019777

PATIENT
  Sex: Female

DRUGS (2)
  1. TRIKAFTA [Suspect]
     Active Substance: ELEXACAFTOR\IVACAFTOR\TEZACAFTOR
     Indication: Cystic fibrosis
     Dosage: UNKNOWN DOSAGE REGIMEN
     Route: 048
  2. TRIKAFTA [Suspect]
     Active Substance: ELEXACAFTOR\IVACAFTOR\TEZACAFTOR
     Dosage: AM TAB IN PM; PM TAB IN AM AND ONLY TAKING AM DOSE IN PM
     Route: 048

REACTIONS (3)
  - Vitamin B2 deficiency [Unknown]
  - Brain fog [Not Recovered/Not Resolved]
  - Headache [Not Recovered/Not Resolved]
